FAERS Safety Report 9641153 (Version 5)
Quarter: 2014Q2

REPORT INFORMATION
  Report Type: Spontaneous
  Country: RU (occurrence: RU)
  Receive Date: 20131023
  Receipt Date: 20140408
  Transmission Date: 20141212
  Serious: Yes (Hospitalization, Other)
  Sender: FDA-Public Use
  Company Number: RU-CELGENEUS-251-21880-13102617

PATIENT
  Age: 58 Year
  Sex: Female
  Weight: 104 kg

DRUGS (3)
  1. REVLIMID [Suspect]
     Indication: PLASMA CELL MYELOMA
     Dosage: 25 MILLIGRAM
     Route: 048
     Dates: start: 20130708, end: 20131010
  2. MLN9708 [Suspect]
     Indication: PLASMA CELL MYELOMA
     Dosage: 4 MILLIGRAM
     Route: 048
     Dates: start: 20130708, end: 20131007
  3. DEXAMETHASONE [Suspect]
     Indication: PLASMA CELL MYELOMA
     Dosage: 40 MILLIGRAM
     Route: 048
     Dates: start: 20130708, end: 20131007

REACTIONS (2)
  - Endometrial hyperplasia [Recovered/Resolved]
  - Metrorrhagia [Recovered/Resolved]
